FAERS Safety Report 5989426-2 (Version None)
Quarter: 2008Q4

REPORT INFORMATION
  Report Type: 
  Country: None (occurrence: None)
  Receive Date: 20081205
  Receipt Date: 20081125
  Transmission Date: 20090506
  Serious: Yes (Other)
  Sender: FDA-Public Use
  Company Number: 2008AP001753

PATIENT
  Age: 57 Year
  Sex: Male
  Weight: 113.3 kg

DRUGS (1)
  1. METFORMIN HCL [Suspect]
     Indication: DIABETES MELLITUS
     Dosage: 1000 MG; BID; PO
     Route: 048

REACTIONS (2)
  - MEDICATION RESIDUE [None]
  - PRODUCT QUALITY ISSUE [None]
